FAERS Safety Report 10286198 (Version 2)
Quarter: 2014Q3

REPORT INFORMATION
  Report Type: Report from Study
  Country: DE (occurrence: None)
  Receive Date: 20140703
  Receipt Date: 20140806
  Transmission Date: 20150326
  Serious: Yes (Hospitalization)
  Sender: FDA-Public Use
  Company Number: 14-M-DE-00115

PATIENT
  Sex: Female

DRUGS (11)
  1. RITUXIMAB (RITUXIMAB) [Concomitant]
     Active Substance: RITUXIMAB
  2. PEGFILGRASTIM (PEGFILGRASTIM) [Concomitant]
     Active Substance: PEGFILGRASTIM
  3. DEKRISTOL (COLECALCIFEROL) [Concomitant]
     Active Substance: CHOLECALCIFEROL
  4. VINCRISTINE SULFATE LIPOSOME [Suspect]
     Active Substance: VINCRISTINE SULFATE
     Indication: NON-HODGKIN^S LYMPHOMA
     Dosage: 2.96 MG, 1-D, INTRAVENOUS
     Route: 042
     Dates: end: 20140604
  5. CYCLOPHOSPHAMIDE (CYCLOPHOSPHAMIDE) [Suspect]
     Active Substance: CYCLOPHOSPHAMIDE
     Indication: NON-HODGKIN^S LYMPHOMA
     Dosage: 1113 MG, 1/D, INTRAVENOUS
     Route: 042
     Dates: end: 20140604
  6. ALLOPURINIOL [Concomitant]
  7. KALINOR-RETRAD P [Concomitant]
  8. PANTOPRAZOLE (PANTOPRAZOLE) [Concomitant]
     Active Substance: PANTOPRAZOLE SODIUM
  9. ACICLOVIR (ACICLOVIR) [Concomitant]
     Active Substance: ACYCLOVIR
  10. DOXORUBICIN (DOXORUBICIN) [Suspect]
     Active Substance: DOXORUBICIN
     Indication: NON-HODGKIN^S LYMPHOMA
     Dosage: 74 MG, 1/D, INTRAVENOUS
     Route: 042
     Dates: end: 20140604
  11. PREDNISOLONE (PREDNISOLONE) [Suspect]
     Active Substance: PREDNISOLONE
     Indication: NON-HODGKIN^S LYMPHOMA
     Dosage: 100 MG, 1/D, ORAL
     Route: 048
     Dates: end: 20140608

REACTIONS (1)
  - Enterocolitis infectious [None]

NARRATIVE: CASE EVENT DATE: 20140613
